FAERS Safety Report 21165955 (Version 2)
Quarter: 2022Q3

REPORT INFORMATION
  Report Type: Spontaneous
  Country: US (occurrence: US)
  Receive Date: 20220803
  Receipt Date: 20220812
  Transmission Date: 20221026
  Serious: Yes (Other)
  Sender: FDA-Public Use
  Company Number: US-drreddys-LIT/USA/22/0152984

PATIENT
  Age: 65 Year
  Sex: Female

DRUGS (22)
  1. DIVALPROEX SODIUM [Suspect]
     Active Substance: DIVALPROEX SODIUM
     Indication: Bipolar disorder
     Dosage: DOSE TITRATED
  2. DIVALPROEX SODIUM [Suspect]
     Active Substance: DIVALPROEX SODIUM
     Dosage: DOSE REDUCED
  3. DIVALPROEX SODIUM [Suspect]
     Active Substance: DIVALPROEX SODIUM
     Dosage: DOSE REDUCED
     Dates: start: 201807
  4. DIVALPROEX SODIUM [Suspect]
     Active Substance: DIVALPROEX SODIUM
     Dates: start: 201908
  5. LURASIDONE [Suspect]
     Active Substance: LURASIDONE
     Indication: Bipolar disorder
     Dosage: TITRATED UP TO
  6. LURASIDONE [Suspect]
     Active Substance: LURASIDONE
     Dosage: REDUCED TO 60 MG/DAY
  7. LURASIDONE [Suspect]
     Active Substance: LURASIDONE
     Dosage: REDUCED TO 40 MG/DAY
     Dates: start: 201902
  8. LURASIDONE [Suspect]
     Active Substance: LURASIDONE
     Dosage: REDUCED TO 40 MG/DAY
     Dates: start: 201908
  9. LURASIDONE [Suspect]
     Active Substance: LURASIDONE
     Dosage: WAS TAPERED AND THEN DISCONTINUED
  10. PERPHENAZINE [Suspect]
     Active Substance: PERPHENAZINE
     Indication: Bipolar disorder
  11. PERPHENAZINE [Suspect]
     Active Substance: PERPHENAZINE
     Dosage: DOSE REDUCED
  12. PERPHENAZINE [Suspect]
     Active Substance: PERPHENAZINE
     Dosage: REDUCED TO 4 MG/DAY AT BEDTIME
  13. PERPHENAZINE [Suspect]
     Active Substance: PERPHENAZINE
  14. PERPHENAZINE [Suspect]
     Active Substance: PERPHENAZINE
  15. TEMAZEPAM [Suspect]
     Active Substance: TEMAZEPAM
     Indication: Bipolar disorder
  16. TEMAZEPAM [Suspect]
     Active Substance: TEMAZEPAM
     Indication: Insomnia
     Dosage: DOSE REDUCED
  17. TEMAZEPAM [Suspect]
     Active Substance: TEMAZEPAM
     Dosage: FIVE YEARS PREVIOUSLY
  18. TEMAZEPAM [Suspect]
     Active Substance: TEMAZEPAM
     Dates: start: 201908
  19. TEMAZEPAM [Suspect]
     Active Substance: TEMAZEPAM
  20. MELATONIN [Suspect]
     Active Substance: MELATONIN
     Indication: Insomnia
     Dosage: 5 TO 10 MG AS REQUIRED
  21. MELATONIN [Suspect]
     Active Substance: MELATONIN
  22. ESCITALOPRAM [Suspect]
     Active Substance: ESCITALOPRAM OXALATE
     Indication: Depression
     Dates: start: 201904

REACTIONS (1)
  - Hyponatraemia [Recovered/Resolved]
